FAERS Safety Report 5722613-7 (Version None)
Quarter: 2008Q2

REPORT INFORMATION
  Report Type: 
  Country: None (occurrence: None)
  Receive Date: 20080429
  Receipt Date: 20070919
  Transmission Date: 20081010
  Serious: No
  Sender: FDA-Public Use
  Company Number: US-ASTRAZENECA-2007UW22081

PATIENT
  Age: 66 Year
  Sex: Male

DRUGS (2)
  1. NEXIUM [Suspect]
     Indication: ABDOMINAL PAIN UPPER
     Route: 048
     Dates: start: 20070918, end: 20070919
  2. CIPRO [Interacting]
     Dates: start: 20070919

REACTIONS (2)
  - DRUG INTERACTION [None]
  - NAUSEA [None]
